FAERS Safety Report 8877926 (Version 1)
Quarter: 2012Q4

REPORT INFORMATION
  Report Type: 
  Country: US (occurrence: US)
  Receive Date: 20121025
  Receipt Date: 20121025
  Transmission Date: 20130627
  Serious: No
  Sender: FDA-Public Use
  Company Number: US-AMGEN-USASP2012020096

PATIENT
  Age: 54 Year
  Sex: Female

DRUGS (3)
  1. ENBREL [Suspect]
     Indication: RHEUMATOID ARTHRITIS
     Dosage: 50 mg, qwk
     Dates: start: 201111
  2. GABAPENTIN [Concomitant]
     Dosage: UNK
  3. TRAMADOL [Concomitant]
     Dosage: UNK

REACTIONS (2)
  - Rheumatoid arthritis [Unknown]
  - Influenza [Unknown]
